FAERS Safety Report 6840534-3 (Version None)
Quarter: 2010Q3

REPORT INFORMATION
  Report Type: 
  Country: None (occurrence: None)
  Receive Date: 20100714
  Receipt Date: 20100707
  Transmission Date: 20110219
  Serious: Yes (Hospitalization)
  Sender: FDA-Public Use
  Company Number: A0869793A

PATIENT
  Age: 64 Year
  Sex: Male

DRUGS (1)
  1. AVANDIA [Suspect]
     Route: 048
     Dates: start: 20030701, end: 20060901

REACTIONS (3)
  - ACUTE MYOCARDIAL INFARCTION [None]
  - ANXIETY [None]
  - CORONARY ARTERY DISEASE [None]
